FAERS Safety Report 21255239 (Version 4)
Quarter: 2022Q4

REPORT INFORMATION
  Report Type: Report from Study
  Country: US (occurrence: US)
  Receive Date: 20220825
  Receipt Date: 20221108
  Transmission Date: 20230113
  Serious: Yes (Hospitalization, Other)
  Sender: FDA-Public Use
  Company Number: US-NOVARTISPH-NVSC2022US190043

PATIENT
  Sex: Female
  Weight: 48.98 kg

DRUGS (23)
  1. ENTRESTO [Suspect]
     Active Substance: SACUBITRIL\VALSARTAN
     Indication: Cardiac failure congestive
     Dosage: 1 DOSAGE FORM, BID (24/26 MG)
     Route: 048
  2. ELIQUIS [Concomitant]
     Active Substance: APIXABAN
     Indication: Product used for unknown indication
     Dosage: UNK
     Route: 065
  3. PEPCID [Concomitant]
     Active Substance: FAMOTIDINE
     Indication: Product used for unknown indication
     Dosage: UNK
     Route: 065
  4. FUROSEMIDE [Concomitant]
     Active Substance: FUROSEMIDE
     Indication: Dyspnoea
     Dosage: 1 DOSAGE FORM, QD
     Route: 048
  5. HYDRALAZINE HYDROCHLORIDE [Concomitant]
     Active Substance: HYDRALAZINE HYDROCHLORIDE
     Indication: Blood pressure abnormal
     Dosage: 1 DOSAGE FORM, QID (WITH FOOD)
     Route: 048
  6. CARVEDILOL [Concomitant]
     Active Substance: CARVEDILOL
     Indication: Blood pressure abnormal
     Dosage: 1 DOSAGE FORM, BID (WITH FOOD)
     Route: 048
  7. PROAIR HFA [Concomitant]
     Active Substance: ALBUTEROL SULFATE
     Indication: Dyspnoea
     Dosage: 2 DOSAGE FORM, PRN (108 (90 BASE)  MCG/ACT AEROSOL SOLUTION PUFFS AS OFTEN AS EVERY 6 HOURS)
  8. SPIRONOLACTONE [Concomitant]
     Active Substance: SPIRONOLACTONE
     Indication: Blood pressure abnormal
     Dosage: 1 DOSAGE FORM, QD
     Route: 048
  9. POTASSIUM CHLORIDE [Concomitant]
     Active Substance: POTASSIUM CHLORIDE
     Indication: Product used for unknown indication
     Dosage: 1 DOSAGE FORM, BID (ER EXTENDED RELEASE WITH FOOD)
     Route: 048
  10. TRIAMCINOLONE ACETONIDE [Concomitant]
     Active Substance: TRIAMCINOLONE ACETONIDE
     Indication: Rash pruritic
     Dosage: UNK, BID (SMALL AMOUNT EXTERNALLY APPLY TO THE ITCHY SPOTS)
     Route: 065
  11. FEXOFENADINE HYDROCHLORIDE [Concomitant]
     Active Substance: FEXOFENADINE HYDROCHLORIDE
     Indication: Pruritus
     Dosage: 1 DOSAGE FORM, QD (SWALLOW WHOLE WITH WATER, DO NOT TAKE IT WITH FRUIT JUICES)
     Route: 048
  12. ATIVAN [Concomitant]
     Active Substance: LORAZEPAM
     Indication: Product used for unknown indication
     Dosage: 1 DOSAGE FORM, QD (BED TIME AS NEEDED)
     Route: 048
  13. HYDROCODONE BITARTRATE AND ACETAMINOPHEN [Concomitant]
     Active Substance: ACETAMINOPHEN\HYDROCODONE BITARTRATE
     Indication: Product used for unknown indication
     Dosage: 1 DOSAGE FORM, PRN (FOR EVERY 6 HOURS)
     Route: 048
  14. LORAZEPAM [Concomitant]
     Active Substance: LORAZEPAM
     Indication: Anxiety
     Dosage: 1 DOSAGE FORM, Q4H (AS OFTEN AS EVERY 6 HOURS ONLY AS NEEDED)
     Route: 048
  15. FAMOTIDINE [Concomitant]
     Active Substance: FAMOTIDINE
     Indication: Pruritus
     Dosage: 1 DOSAGE FORM, BID
     Route: 048
  16. DIPHENHYDRAMINE HYDROCHLORIDE [Concomitant]
     Active Substance: DIPHENHYDRAMINE HYDROCHLORIDE
     Indication: Pruritus
     Dosage: 1 DOSAGE FORM, PRN (AS OFTEN AS  EVERY 6 HOURS)
     Route: 048
  17. CETIRIZINE HYDROCHLORIDE [Concomitant]
     Active Substance: CETIRIZINE HYDROCHLORIDE
     Indication: Pruritus
     Dosage: 1 DOSAGE FORM, PRN (AT BED TIME)
     Route: 048
  18. FEXOFENADINE [Concomitant]
     Active Substance: FEXOFENADINE HYDROCHLORIDE
     Indication: Pruritus
     Dosage: UNK
     Route: 065
  19. KEPPRA [Concomitant]
     Active Substance: LEVETIRACETAM
     Indication: Seizure
     Dosage: 1 DOSAGE FORM, Q12H
     Route: 048
  20. APIXABAN [Concomitant]
     Active Substance: APIXABAN
     Indication: Thrombosis
     Dosage: 1 DOSAGE FORM, BID
     Route: 048
  21. ZANAFLEX [Concomitant]
     Active Substance: TIZANIDINE HYDROCHLORIDE
     Indication: Muscle spasms
     Dosage: 1 DOSAGE FORM, Q8H (AS NEEDED)
     Route: 048
  22. BENADRYL [Concomitant]
     Active Substance: DIPHENHYDRAMINE HYDROCHLORIDE
     Indication: Product used for unknown indication
     Dosage: UNK, Q6H
     Route: 065
  23. ATARAX [Concomitant]
     Active Substance: HYDROXYZINE HYDROCHLORIDE
     Indication: Product used for unknown indication
     Dosage: UNK
     Route: 065

REACTIONS (15)
  - Syncope [Unknown]
  - Cardiac failure congestive [Unknown]
  - Electrocardiogram QT prolonged [Unknown]
  - Urinary tract infection fungal [Unknown]
  - Hypertension [Unknown]
  - Urinary tract infection [Unknown]
  - Decreased appetite [Unknown]
  - Weight decreased [Unknown]
  - Thinking abnormal [Unknown]
  - Urine abnormality [Unknown]
  - Urine protein/creatinine ratio abnormal [Unknown]
  - Urinary tract infection bacterial [Unknown]
  - Blood potassium decreased [Unknown]
  - Cough [Unknown]
  - Hypotension [Unknown]
